FAERS Safety Report 19269621 (Version 1)
Quarter: 2021Q2

REPORT INFORMATION
  Report Type: Spontaneous
  Country: US (occurrence: US)
  Receive Date: 20210518
  Receipt Date: 20210518
  Transmission Date: 20210717
  Serious: No
  Sender: FDA-Public Use
  Company Number: None

PATIENT
  Age: 50 Year
  Sex: Female
  Weight: 63 kg

DRUGS (3)
  1. ENHERTU [Suspect]
     Active Substance: FAM-TRASTUZUMAB DERUXTECAN-NXKI
     Indication: BREAST CANCER
     Dosage: ?          QUANTITY:1 INFUSION;OTHER FREQUENCY:EVERY 3 WEEKS;?
     Route: 042
     Dates: start: 20210108
  2. VENLAFAXINE [Concomitant]
     Active Substance: VENLAFAXINE HYDROCHLORIDE
  3. CPAP MACHINE [Concomitant]

REACTIONS (2)
  - Visual impairment [None]
  - Dry eye [None]

NARRATIVE: CASE EVENT DATE: 20210319
